FAERS Safety Report 6315241-6 (Version None)
Quarter: 2009Q3

REPORT INFORMATION
  Report Type: 
  Country: None (occurrence: None)
  Receive Date: 20090819
  Receipt Date: 20090811
  Transmission Date: 20100115
  Serious: Yes (Other)
  Sender: FDA-Public Use
  Company Number: PHEH2009US09085

PATIENT
  Sex: Female

DRUGS (3)
  1. AREDIA [Suspect]
  2. PAMIDRONATE DISODIUM [Suspect]
  3. ZOMETA [Suspect]

REACTIONS (9)
  - ANXIETY [None]
  - DEFORMITY [None]
  - DISABILITY [None]
  - EMOTIONAL DISTRESS [None]
  - INFECTION [None]
  - INJURY [None]
  - OSTEONECROSIS [None]
  - OVERDOSE [None]
  - PAIN [None]
